FAERS Safety Report 4543186-0 (Version None)
Quarter: 2004Q4

REPORT INFORMATION
  Report Type: 
  Country: None (occurrence: None)
  Receive Date: 20041229
  Receipt Date: 20041213
  Transmission Date: 20050328
  Serious: Yes (Other)
  Sender: FDA-Public Use
  Company Number: 2004094230

PATIENT
  Age: 81 Year
  Sex: Male

DRUGS (3)
  1. SULPERAZONE (SULPERAZON) (SULBACTAM, CEFOPERAZONE) [Suspect]
     Indication: PNEUMONIA ASPIRATION
     Dosage: 2 GRAM (2 GRAM, 1 IN 1 D), INTRAVENOUS
     Route: 042
     Dates: start: 20040919, end: 20041014
  2. PRODIF (FOSFLUCONAZOLE) [Suspect]
     Indication: CANDIDA ENDOPHTHALMITIS
     Dosage: 504.5 MG, INTRAVENOUS
     Route: 042
     Dates: start: 20041020, end: 20041102
  3. CEFPIROME SULFATE (CEFPIROME SULFATE) [Suspect]
     Indication: BACTERIAL INFECTION
     Dosage: 4 GRAM (2 GRAM, BID), INTRAVENOUS
     Route: 042
     Dates: start: 20041020, end: 20041102

REACTIONS (4)
  - BACTERIAL INFECTION [None]
  - C-REACTIVE PROTEIN INCREASED [None]
  - CANDIDA ENDOPHTHALMITIS [None]
  - RENAL FAILURE ACUTE [None]
